FAERS Safety Report 15336530 (Version 2)
Quarter: 2020Q1

REPORT INFORMATION
  Report Type: Report from Study
  Country: US (occurrence: US)
  Receive Date: 20180830
  Receipt Date: 20200317
  Transmission Date: 20200409
  Serious: No
  Sender: FDA-Public Use
  Company Number: PHEH2018US035940

PATIENT
  Age: 82 Year
  Sex: Male

DRUGS (1)
  1. ENTRESTO [Suspect]
     Active Substance: SACUBITRIL\VALSARTAN
     Indication: CARDIAC FAILURE
     Dosage: 200 MG, OTHER
     Route: 048
     Dates: start: 2019

REACTIONS (4)
  - Feeling abnormal [Unknown]
  - Depression [Unknown]
  - Asthenia [Unknown]
  - Hypoacusis [Unknown]

NARRATIVE: CASE EVENT DATE: 202002
